FAERS Safety Report 6364051-2 (Version None)
Quarter: 2009Q3

REPORT INFORMATION
  Report Type: 
  Country: None (occurrence: None)
  Receive Date: 20090919
  Receipt Date: 20090710
  Transmission Date: 20100115
  Serious: No
  Sender: FDA-Public Use
  Company Number: US-ABBOTT-09P-163-0585228-00

PATIENT
  Sex: Female
  Weight: 98.064 kg

DRUGS (5)
  1. HUMIRA [Suspect]
     Indication: CROHN'S DISEASE
     Route: 058
     Dates: start: 20071001
  2. FLAGYL [Concomitant]
     Indication: ANAL FISTULA
  3. FLAGYL [Concomitant]
     Indication: PROPHYLAXIS
  4. AMOXICILLIN [Concomitant]
     Indication: PROPHYLAXIS
  5. AMOXICILLIN [Concomitant]
     Indication: ANAL FISTULA

REACTIONS (1)
  - DENTAL CARIES [None]
